FAERS Safety Report 8935378 (Version 1)
Quarter: 2012Q4

REPORT INFORMATION
  Report Type: Spontaneous
  Country: US (occurrence: None)
  Receive Date: 20121127
  Receipt Date: 20121127
  Transmission Date: 20130627
  Serious: Yes (Other)
  Sender: FDA-Public Use
  Company Number: None

PATIENT
  Age: 36 Year
  Sex: Female
  Weight: 54.43 kg

DRUGS (1)
  1. OCELLA [Suspect]
     Indication: BIRTH CONTROL
     Route: 048
     Dates: start: 20121001, end: 20121125

REACTIONS (5)
  - Product substitution issue [None]
  - Drug effect decreased [None]
  - Mood swings [None]
  - Metrorrhagia [None]
  - Product quality issue [None]
